FAERS Safety Report 12742984 (Version 1)
Quarter: 2016Q3

REPORT INFORMATION
  Report Type: Spontaneous
  Country: US (occurrence: US)
  Receive Date: 20160914
  Receipt Date: 20160914
  Transmission Date: 20161109
  Serious: Yes (Other)
  Sender: FDA-Public Use
  Company Number: None

PATIENT
  Age: 84 Year
  Sex: Female
  Weight: 44.45 kg

DRUGS (1)
  1. NAMENDA [Suspect]
     Active Substance: MEMANTINE HYDROCHLORIDE

REACTIONS (11)
  - Dyskinesia [None]
  - Tremor [None]
  - Abnormal sleep-related event [None]
  - Frequent bowel movements [None]
  - Pollakiuria [None]
  - Lethargy [None]
  - Rhinorrhoea [None]
  - Night sweats [None]
  - Blood pressure diastolic decreased [None]
  - Muscle twitching [None]
  - Gait disturbance [None]

NARRATIVE: CASE EVENT DATE: 20160911
